FAERS Safety Report 4610172-1 (Version None)
Quarter: 2005Q1

REPORT INFORMATION
  Report Type: 
  Country: None (occurrence: None)
  Receive Date: 20050314
  Receipt Date: 20050307
  Transmission Date: 20050727
  Serious: Yes (Life-Threatening, Hospitalization)
  Sender: FDA-Public Use
  Company Number: 26321

PATIENT
  Age: 78 Year
  Sex: Female

DRUGS (6)
  1. FLECAINIDE ACETATE [Suspect]
     Dosage: 100 MG ORAL
     Route: 048
     Dates: end: 20050127
  2. PRETERAX (PERINDOPRIL, INDAPAMIDE) [Suspect]
     Dosage: 1 DOSAGE FORMS (1 IN 1 DAY(S)) ORAL
     Route: 048
     Dates: end: 20050127
  3. NAPROXEN SODIUM [Suspect]
     Dosage: 2 IN 1 DAY(S) ORAL
     Route: 048
  4. DIGOXIN [Suspect]
     Dosage: 0.125 MG (0.125 MG, 1 IN 1 DAY(S)) ORAL
     Route: 048
     Dates: end: 20050127
  5. ALLOPURINOL [Suspect]
     Dosage: 200 MG (200 MG, 1 IN 1 DAY(S)) ORAL
     Route: 048
     Dates: end: 20050127
  6. NOOTROPYL (PIRACETAM) [Suspect]
     Dosage: 2400 MG (800 MG, 3 IN 1 DAY(S)) ORAL
     Route: 048
     Dates: end: 20050127

REACTIONS (6)
  - CARDIAC ARREST [None]
  - LOSS OF CONSCIOUSNESS [None]
  - SINUS BRADYCARDIA [None]
  - TORSADE DE POINTES [None]
  - VENTRICULAR EXTRASYSTOLES [None]
  - VENTRICULAR HYPERTROPHY [None]
